FAERS Safety Report 14957784 (Version 2)
Quarter: 2018Q4

REPORT INFORMATION
  Report Type: Spontaneous
  Country: US (occurrence: US)
  Receive Date: 20180531
  Receipt Date: 20181012
  Transmission Date: 20190204
  Serious: Yes (Hospitalization, Disabling, Other)
  Sender: FDA-Public Use
  Company Number: US-009507513-1805USA011462

PATIENT
  Sex: Female
  Weight: 86.17 kg

DRUGS (1)
  1. NUVARING [Suspect]
     Active Substance: ETHINYL ESTRADIOL\ETONOGESTREL
     Indication: CONTRACEPTION
     Dosage: UNK
     Route: 067
     Dates: start: 2013, end: 20160620

REACTIONS (21)
  - Ileus paralytic [Recovering/Resolving]
  - Nausea [Unknown]
  - Swelling [Unknown]
  - Panic disorder [Unknown]
  - Post-traumatic stress disorder [Unknown]
  - Intestinal ischaemia [Unknown]
  - Pneumonia aspiration [Unknown]
  - Vomiting [Unknown]
  - Abdominal pain upper [Unknown]
  - Anxiety [Unknown]
  - Small intestinal obstruction [Unknown]
  - Mesenteric artery thrombosis [Unknown]
  - Acute kidney injury [Recovering/Resolving]
  - Tubulointerstitial nephritis [Recovering/Resolving]
  - Bandaemia [Unknown]
  - Pulmonary embolism [Unknown]
  - Dehydration [Recovered/Resolved]
  - Hypokalaemia [Unknown]
  - Infection [Unknown]
  - Mesenteric vein thrombosis [Unknown]
  - Depression [Unknown]

NARRATIVE: CASE EVENT DATE: 2016
